FAERS Safety Report 9263143 (Version 3)
Quarter: 2013Q2

REPORT INFORMATION
  Report Type: Spontaneous
  Country: GB (occurrence: None)
  Receive Date: 20130425
  Receipt Date: 20130612
  Transmission Date: 20140414
  Serious: Yes (Other)
  Sender: FDA-Public Use
  Company Number: AUR-APL-2013-03273

PATIENT
  Sex: Female

DRUGS (5)
  1. RISPERIDONE [Suspect]
     Indication: AGITATION
     Dosage: (0.5 MG), UNKNOWN
     Route: 048
     Dates: start: 20120925
  2. RISPERIDONE [Suspect]
     Indication: AFFECTIVE DISORDER
     Dosage: (0.5 MG), UNKNOWN
     Route: 048
     Dates: start: 20120925
  3. ALVERINE CITRATE (ALVERINE CITRATE) [Concomitant]
  4. LEVOTHYROXINE (LEVOTHYROXINE) [Concomitant]
  5. OMEPRAZOLE (OMEPRAZOLE) [Concomitant]

REACTIONS (2)
  - Lower respiratory tract infection [None]
  - White blood cell count decreased [None]
